FAERS Safety Report 10857868 (Version 2)
Quarter: 2015Q1

REPORT INFORMATION
  Report Type: Report from Study
  Country: PL (occurrence: PL)
  Receive Date: 20150223
  Receipt Date: 20150225
  Transmission Date: 20150721
  Serious: Yes (Hospitalization, Other)
  Sender: FDA-Public Use
  Company Number: PL-AMGEN-2014-0477

PATIENT
  Age: 62 Year
  Sex: Female

DRUGS (22)
  1. CARFILZOMIB [Suspect]
     Active Substance: CARFILZOMIB
     Dosage: FREQUENCY: 6 EVERY 28 DAYS; FREQ. TEXT: DAYS, 1, 2, 8, 9, 15, 16, EVERY 28 DAYS
     Route: 042
     Dates: start: 20131127
  2. OXYCONTIN [Concomitant]
     Active Substance: OXYCODONE HYDROCHLORIDE
     Indication: LUMBAR VERTEBRAL FRACTURE
     Route: 048
     Dates: start: 2011
  3. MILGAMMA [Concomitant]
     Active Substance: VITAMIN B
     Indication: POLYNEUROPATHY
  4. CARFILZOMIB [Suspect]
     Active Substance: CARFILZOMIB
     Indication: PLASMA CELL MYELOMA
     Dosage: FREQ. TEXT: DAYS 1, 2
     Route: 042
     Dates: start: 20131028, end: 20131029
  5. POLPRAZOL [Concomitant]
     Active Substance: OMEPRAZOLE
     Indication: PROPHYLAXIS
     Route: 048
     Dates: start: 2011
  6. DEXAMETHASONE. [Suspect]
     Active Substance: DEXAMETHASONE
     Indication: PLASMA CELL MYELOMA
     Dosage: FREQUENCY: 8 EVERY 28 DAYS; FREQ. TEXT: DAYS 1,2,8,9,15,16,22,23, EVERY 28 DAYS
     Route: 048
     Dates: start: 20131028
  7. BISOCARD [Concomitant]
     Active Substance: BISOPROLOL
     Indication: HYPERTENSION
     Route: 048
     Dates: start: 2008
  8. MILURIT [Concomitant]
     Active Substance: ALLOPURINOL
     Indication: PROPHYLAXIS
     Route: 048
     Dates: start: 201107
  9. LIV 52 [Concomitant]
     Indication: PROPHYLAXIS
     Route: 048
     Dates: start: 2011
  10. GABAPENTIN TEVA [Concomitant]
     Active Substance: GABAPENTIN
     Indication: POLYNEUROPATHY
  11. GABAPENTIN TEVA [Concomitant]
     Active Substance: GABAPENTIN
     Indication: PROPHYLAXIS
  12. CARFILZOMIB [Suspect]
     Active Substance: CARFILZOMIB
     Dosage: FREQUENCY: 4 EVERY 21 DAYS; FREQ. TEXT: DAYS 8, 9, 15, 16, EVERY 21 DAYS
     Route: 042
     Dates: start: 20131106, end: 20131114
  13. SIOFOR [Concomitant]
     Active Substance: METFORMIN HYDROCHLORIDE
     Indication: DIABETES MELLITUS
     Route: 048
     Dates: start: 2009
  14. KALIPOZ [Concomitant]
     Active Substance: POTASSIUM CHLORIDE
     Indication: SUPPLEMENTATION THERAPY
     Route: 048
     Dates: start: 2011
  15. MILGAMMA [Concomitant]
     Active Substance: VITAMIN B
     Route: 048
     Dates: start: 201309
  16. LECALPIN [Concomitant]
     Indication: HYPERTENSION
     Route: 048
     Dates: start: 2008
  17. AMARYL [Concomitant]
     Active Substance: GLIMEPIRIDE
     Indication: DIABETES MELLITUS
     Route: 048
     Dates: start: 2009
  18. HEVIRAN [Concomitant]
     Active Substance: ACYCLOVIR
     Indication: PROPHYLAXIS
     Route: 048
     Dates: start: 2011
  19. MILGAMMA [Concomitant]
     Active Substance: VITAMIN B
     Indication: PROPHYLAXIS
  20. RAMIPRIL. [Concomitant]
     Active Substance: RAMIPRIL
     Indication: HYPERTENSION
     Route: 048
     Dates: start: 2008
  21. ACARD [Concomitant]
     Active Substance: ASPIRIN
     Indication: PROPHYLAXIS
     Route: 048
     Dates: start: 2008
  22. GABAPENTIN TEVA [Concomitant]
     Active Substance: GABAPENTIN
     Route: 048
     Dates: start: 201309

REACTIONS (1)
  - Troponin T increased [Recovered/Resolved]

NARRATIVE: CASE EVENT DATE: 20140227
